FAERS Safety Report 14184048 (Version 2)
Quarter: 2018Q2

REPORT INFORMATION
  Report Type: Report from Study
  Country: US (occurrence: US)
  Receive Date: 20171113
  Receipt Date: 20180410
  Transmission Date: 20180711
  Serious: Yes (Hospitalization)
  Sender: FDA-Public Use
  Company Number: US-SA-2017SA207310

PATIENT
  Age: 57 Year
  Sex: Female

DRUGS (3)
  1. VITAMIN B12 [Concomitant]
     Active Substance: CYANOCOBALAMIN
     Route: 065
     Dates: start: 201710
  2. LEMTRADA [Suspect]
     Active Substance: ALEMTUZUMAB
     Indication: MULTIPLE SCLEROSIS
     Route: 041
     Dates: start: 20171011, end: 20171013
  3. LEMTRADA [Suspect]
     Active Substance: ALEMTUZUMAB
     Indication: MULTIPLE SCLEROSIS
     Route: 041
     Dates: start: 20161003, end: 20161007

REACTIONS (26)
  - Dysarthria [Unknown]
  - Asthenia [Recovered/Resolved]
  - Feeling abnormal [Unknown]
  - Apathy [Unknown]
  - Back pain [Not Recovered/Not Resolved]
  - Poor venous access [Unknown]
  - Pain [Not Recovered/Not Resolved]
  - Speech disorder [Recovered/Resolved]
  - Contusion [Not Recovered/Not Resolved]
  - Somnolence [Unknown]
  - Rib fracture [Unknown]
  - Gait disturbance [Recovered/Resolved]
  - Fall [Unknown]
  - Asthenia [Unknown]
  - Erythema [Not Recovered/Not Resolved]
  - Feeling hot [Not Recovered/Not Resolved]
  - Urinary tract infection [Not Recovered/Not Resolved]
  - Transient ischaemic attack [Recovered/Resolved]
  - Neck pain [Not Recovered/Not Resolved]
  - Intellectual disability [Unknown]
  - Stress [Unknown]
  - Musculoskeletal stiffness [Unknown]
  - Cough [Unknown]
  - Fatigue [Unknown]
  - Discomfort [Unknown]
  - Sciatica [Not Recovered/Not Resolved]

NARRATIVE: CASE EVENT DATE: 2017
